FAERS Safety Report 7195421-0 (Version None)
Quarter: 2010Q4

REPORT INFORMATION
  Report Type: 
  Country: None (occurrence: None)
  Receive Date: 20101223
  Receipt Date: 20101001
  Transmission Date: 20110411
  Serious: No
  Sender: FDA-Public Use
  Company Number: US-AMGEN-KDL442549

PATIENT

DRUGS (7)
  1. ENBREL [Suspect]
     Indication: PRODUCT USED FOR UNKNOWN INDICATION
     Dosage: 50 MG, QWK
     Route: 058
  2. METHOTREXATE [Concomitant]
     Dosage: 2.5 MG, UNK
  3. CETIRIZINE HYDROCHLORIDE [Concomitant]
     Dosage: 5 MG, UNK
  4. ERGOCALCIFEROL [Concomitant]
     Dosage: 1000 IU, UNK
  5. IRON [Concomitant]
     Dosage: 325 MG, UNK
  6. CALCIUM [Concomitant]
     Dosage: 500 MG, UNK
  7. FOLIC ACID [Concomitant]
     Dosage: 5 MG, UNK

REACTIONS (5)
  - COUGH [None]
  - DIZZINESS [None]
  - FATIGUE [None]
  - OROPHARYNGEAL PAIN [None]
  - RHINORRHOEA [None]
